FAERS Safety Report 21066431 (Version 1)
Quarter: 2022Q3

REPORT INFORMATION
  Report Type: Spontaneous
  Country: None (occurrence: None)
  Receive Date: 20220711
  Receipt Date: 20220711
  Transmission Date: 20221027
  Serious: No
  Sender: FDA-Public Use
  Company Number: None

PATIENT
  Sex: Male

DRUGS (1)
  1. AMICAR [Suspect]
     Active Substance: AMINOCAPROIC ACID

REACTIONS (2)
  - Epistaxis [Unknown]
  - Abdominal discomfort [Unknown]
